FAERS Safety Report 24782751 (Version 1)
Quarter: 2024Q4

REPORT INFORMATION
  Report Type: Spontaneous
  Country: CN (occurrence: CN)
  Receive Date: 20241227
  Receipt Date: 20241227
  Transmission Date: 20250114
  Serious: Yes (Other)
  Sender: JOHNSON AND JOHNSON
  Company Number: CN-JNJFOC-20241240648

PATIENT
  Sex: Male

DRUGS (3)
  1. ZYTIGA [Suspect]
     Active Substance: ABIRATERONE ACETATE
     Indication: Hormone-refractory prostate cancer
     Route: 048
  2. DOCETAXEL [Suspect]
     Active Substance: DOCETAXEL
     Indication: Prostate cancer metastatic
     Route: 065
  3. PREDNISONE [Suspect]
     Active Substance: PREDNISONE
     Indication: Prostate cancer metastatic
     Route: 048

REACTIONS (8)
  - Hepatotoxicity [Recovered/Resolved]
  - Myelosuppression [Unknown]
  - Hypokalaemia [Unknown]
  - Fatigue [Unknown]
  - Hypertension [Unknown]
  - Fluid retention [Unknown]
  - Alopecia [Unknown]
  - Gastrointestinal disorder [Unknown]
